FAERS Safety Report 5416931-X (Version None)
Quarter: 2007Q3

REPORT INFORMATION
  Report Type: 
  Country: None (occurrence: None)
  Receive Date: 20070816
  Receipt Date: 20070808
  Transmission Date: 20080115
  Serious: Yes (Other)
  Sender: FDA-Public Use
  Company Number: BR-JNJFOC-20070802421

PATIENT
  Age: 24 Year
  Sex: Female

DRUGS (2)
  1. HALDOL [Suspect]
     Indication: DEPRESSION
     Route: 048
  2. FRONTAL [Concomitant]
     Dosage: STARTED WHEN PAT. WAS 13 YRS.

REACTIONS (3)
  - EYE MOVEMENT DISORDER [None]
  - MUSCLE CONTRACTURE [None]
  - OEDEMA MOUTH [None]
